FAERS Safety Report 19938791 (Version 2)
Quarter: 2025Q3

REPORT INFORMATION
  Report Type: Spontaneous
  Country: EU (occurrence: EU)
  Receive Date: 20211011
  Receipt Date: 20250818
  Transmission Date: 20251020
  Serious: Yes (Other)
  Sender: AUROBINDO
  Company Number: EU-MLMSERVICE-20210921-3117996-1

PATIENT
  Age: 12 Year
  Sex: Female

DRUGS (3)
  1. FLECAINIDE [Suspect]
     Active Substance: FLECAINIDE
     Indication: Product used for unknown indication
     Dosage: 50 MILLIGRAM, TWO TIMES A DAY
     Route: 065
  2. METOPROLOL [Concomitant]
     Active Substance: METOPROLOL
     Indication: Ventricular arrhythmia
     Dosage: 100 MILLIGRAM, TWO TIMES A DAY
     Route: 065
  3. HYDROQUINIDINE [Concomitant]
     Active Substance: HYDROQUINIDINE
     Indication: Ventricular tachycardia
     Dosage: 150 MILLIGRAM, 3 TIMES A DAY
     Route: 065

REACTIONS (1)
  - Electrocardiogram QT prolonged [Unknown]
